FAERS Safety Report 18322870 (Version 1)
Quarter: 2020Q3

REPORT INFORMATION
  Report Type: Spontaneous
  Country: BR (occurrence: BR)
  Receive Date: 20200929
  Receipt Date: 20200929
  Transmission Date: 20201103
  Serious: Yes (Other)
  Sender: FDA-Public Use
  Company Number: BR-TORRENT-00005454

PATIENT
  Age: 67 Year
  Sex: Female
  Weight: 73 kg

DRUGS (2)
  1. ANGIPRESS [Concomitant]
     Active Substance: ATENOLOL
     Indication: HYPERTENSION
     Dosage: 1 TABLET DAILY, MANY YEARS AGO
     Route: 048
  2. ROSUCOR [Suspect]
     Active Substance: ROSUVASTATIN CALCIUM
     Indication: DYSLIPIDAEMIA
     Dosage: ONE TABLET DAILY
     Route: 048
     Dates: start: 202008, end: 20200917

REACTIONS (2)
  - Varicose vein operation [Unknown]
  - Expired product administered [Unknown]

NARRATIVE: CASE EVENT DATE: 2019
